FAERS Safety Report 25763665 (Version 1)
Quarter: 2025Q3

REPORT INFORMATION
  Report Type: Spontaneous
  Country: US (occurrence: US)
  Receive Date: 20250905
  Receipt Date: 20250905
  Transmission Date: 20251020
  Serious: No
  Sender: DOMPE FARMACEUTICI
  Company Number: US-FARMAPROD-202410-3660

PATIENT
  Age: 85 Year
  Sex: Female

DRUGS (10)
  1. OXERVATE [Suspect]
     Active Substance: CENEGERMIN-BKBJ
     Indication: Neurotrophic keratopathy
     Route: 047
     Dates: start: 20241008, end: 20241026
  2. INVELTYS [Concomitant]
     Active Substance: LOTEPREDNOL ETABONATE
  3. IVIZIA [Concomitant]
     Active Substance: POVIDONE
  4. LUMIFY [Concomitant]
     Active Substance: BRIMONIDINE TARTRATE
  5. REFRESH TEARS [Concomitant]
     Active Substance: CARBOXYMETHYLCELLULOSE SODIUM
  6. DIAZEPAM [Concomitant]
     Active Substance: DIAZEPAM
  7. DUPIXENT [Concomitant]
     Active Substance: DUPILUMAB
  8. ESCITALOPRAM [Concomitant]
     Active Substance: ESCITALOPRAM OXALATE
  9. OMEPRAZOLE [Concomitant]
     Active Substance: OMEPRAZOLE
  10. VALIUM [Concomitant]
     Active Substance: DIAZEPAM

REACTIONS (10)
  - Ocular discomfort [Not Recovered/Not Resolved]
  - Vision blurred [Not Recovered/Not Resolved]
  - Ocular hyperaemia [Not Recovered/Not Resolved]
  - Visual acuity reduced [Not Recovered/Not Resolved]
  - Eye pain [Recovering/Resolving]
  - Eye swelling [Recovering/Resolving]
  - Eye pruritus [Recovering/Resolving]
  - Lacrimation increased [Recovering/Resolving]
  - Eye irritation [Recovering/Resolving]
  - Drug ineffective [None]
